FAERS Safety Report 15043796 (Version 2)
Quarter: 2018Q2

REPORT INFORMATION
  Report Type: Spontaneous
  Country: US (occurrence: US)
  Receive Date: 20180621
  Receipt Date: 20180622
  Transmission Date: 20180711
  Serious: Yes (Death, Hospitalization, Other)
  Sender: FDA-Public Use
  Company Number: US-UNITED THERAPEUTICS-UNT-2018-008768

PATIENT
  Age: 61 Year
  Sex: Female
  Weight: 80 kg

DRUGS (3)
  1. REMODULIN [Suspect]
     Active Substance: TREPROSTINIL
     Indication: PULMONARY ARTERIAL HYPERTENSION
     Dosage: 0.0112 ?G/KG, CONTINUING
     Route: 058
     Dates: start: 20180608
  2. UPTRAVI [Concomitant]
     Active Substance: SELEXIPAG
     Indication: PRODUCT USED FOR UNKNOWN INDICATION
     Route: 065
  3. REMODULIN [Suspect]
     Active Substance: TREPROSTINIL
     Dosage: 0.009 ?G/KG, CONTINUING
     Route: 058
     Dates: start: 20180607

REACTIONS (9)
  - Heart rate increased [Unknown]
  - Blood pressure increased [Unknown]
  - Supraventricular tachycardia [Unknown]
  - Feeling cold [Unknown]
  - Fatigue [Unknown]
  - Seizure [Fatal]
  - Hyperhidrosis [Unknown]
  - Feeling hot [Unknown]
  - Nausea [Unknown]

NARRATIVE: CASE EVENT DATE: 201806
